FAERS Safety Report 10061766 (Version 2)
Quarter: 2014Q2

REPORT INFORMATION
  Report Type: Spontaneous
  Country: US (occurrence: US)
  Receive Date: 20140407
  Receipt Date: 20140407
  Transmission Date: 20141212
  Serious: Yes (Other)
  Sender: FDA-Public Use
  Company Number: US-BIOGENIDEC-2014BI020322

PATIENT
  Age: 36 Year
  Sex: Female
  Weight: 95 kg

DRUGS (7)
  1. AVONEX [Suspect]
     Indication: MULTIPLE SCLEROSIS
     Route: 030
     Dates: start: 20080527, end: 20140217
  2. RITALIN [Concomitant]
     Route: 048
  3. VICODIN [Concomitant]
     Indication: PAIN
     Route: 048
  4. MOTRIN [Concomitant]
     Indication: PAIN
     Route: 048
  5. XANAX [Concomitant]
     Indication: SLEEP DISORDER
     Route: 048
  6. VITAMIN D [Concomitant]
     Route: 048
  7. FROVA [Concomitant]
     Route: 048

REACTIONS (17)
  - Paratracheal lymphadenopathy [Unknown]
  - Abdominal hernia [Unknown]
  - Costochondritis [Unknown]
  - Migraine [Unknown]
  - Oedema peripheral [Recovered/Resolved]
  - Abdominal pain upper [Unknown]
  - Varicose vein [Not Recovered/Not Resolved]
  - Nocturia [Not Recovered/Not Resolved]
  - Grief reaction [Unknown]
  - Adverse drug reaction [Recovered/Resolved]
  - Night sweats [Recovered/Resolved]
  - Pain in extremity [Not Recovered/Not Resolved]
  - Arthritis [Unknown]
  - Anxiety [Unknown]
  - Depression [Unknown]
  - Chest discomfort [Unknown]
  - Musculoskeletal chest pain [Recovered/Resolved]
